FAERS Safety Report 21621433 (Version 2)
Quarter: 2022Q4

REPORT INFORMATION
  Report Type: Spontaneous
  Country: US (occurrence: US)
  Receive Date: 20221121
  Receipt Date: 20221121
  Transmission Date: 20230112
  Serious: Yes (Life-Threatening, Hospitalization, Other)
  Sender: FDA-Public Use
  Company Number: US-PFIZER INC-PV202200104284

PATIENT
  Age: 65 Year
  Sex: Male

DRUGS (1)
  1. GLIPIZIDE [Suspect]
     Active Substance: GLIPIZIDE
     Indication: Type 2 diabetes mellitus
     Dosage: 5 MG

REACTIONS (1)
  - Ventricular arrhythmia [Recovering/Resolving]
